FAERS Safety Report 24358363 (Version 3)
Quarter: 2024Q3

REPORT INFORMATION
  Report Type: Spontaneous
  Country: US (occurrence: US)
  Receive Date: 20240924
  Receipt Date: 20240928
  Transmission Date: 20241016
  Serious: Yes (Hospitalization)
  Sender: IPSEN
  Company Number: US-IPSEN Group, Research and Development-2024-18880

PATIENT
  Age: 8 Year
  Sex: Male

DRUGS (6)
  1. BYLVAY [Suspect]
     Active Substance: ODEVIXIBAT
     Indication: Congenital hepatobiliary anomaly
     Dosage: TAKE 2 CAPSULE ONCE DAILY WITH A MEAL
     Route: 048
     Dates: start: 20240405
  2. BYLVAY [Suspect]
     Active Substance: ODEVIXIBAT
     Indication: Pruritus
  3. RIFAMPIN [Concomitant]
     Active Substance: RIFAMPIN
     Route: 065
  4. URSODIOL [Concomitant]
     Active Substance: URSODIOL
     Route: 065
  5. HYDROCORTISONE [Concomitant]
     Active Substance: HYDROCORTISONE\HYDROCORTISONE ACETATE
     Route: 065
  6. FLINTSTONES COMPLETE VITAMIN [Concomitant]
     Route: 065

REACTIONS (2)
  - Disease complication [Not Recovered/Not Resolved]
  - Constipation [Not Recovered/Not Resolved]
